FAERS Safety Report 7248096-6 (Version None)
Quarter: 2011Q1

REPORT INFORMATION
  Report Type: 
  Country: None (occurrence: None)
  Receive Date: 20110127
  Receipt Date: 20110119
  Transmission Date: 20110831
  Serious: Yes (Death, Other)
  Sender: FDA-Public Use
  Company Number: US-BAXTER-2011BH002222

PATIENT

DRUGS (1)
  1. HEPARIN [Suspect]
     Indication: VENTRICULAR ASSIST DEVICE INSERTION
     Route: 042

REACTIONS (2)
  - MULTI-ORGAN FAILURE [None]
  - HEPARIN-INDUCED THROMBOCYTOPENIA [None]
